FAERS Safety Report 4358932-9 (Version None)
Quarter: 2004Q2

REPORT INFORMATION
  Report Type: 
  Country: None (occurrence: None)
  Receive Date: 20040511
  Receipt Date: 20040426
  Transmission Date: 20050107
  Serious: Yes (Life-Threatening)
  Sender: FDA-Public Use
  Company Number: 2004-0006993

PATIENT
  Age: 50 Year
  Sex: Female
  Weight: 57.3 kg

DRUGS (8)
  1. TENOFOVIR DISOPROXIL FUMARATE (TENOFOVIR DISOPROXIL FUMARATE) [Suspect]
     Indication: HIV INFECTION
     Dosage: 300 MG, 1 IN 1 D, ORAL
     Route: 048
     Dates: start: 20030915, end: 20040402
  2. 3TC (LAMIVUDINE) [Concomitant]
  3. NEVIRAPINE (NEVIRAPINE) [Concomitant]
  4. DAPSONE [Concomitant]
  5. LIPITOR [Concomitant]
  6. IRON (IRON) [Concomitant]
  7. PARIET (RABEPRAZOLE SODIUM) [Concomitant]
  8. CALCIUM (CALCIUM) [Concomitant]

REACTIONS (9)
  - DIARRHOEA [None]
  - GASTROINTESTINAL HAEMORRHAGE [None]
  - HAEMOGLOBIN DECREASED [None]
  - MELAENA [None]
  - NAUSEA [None]
  - OESOPHAGEAL VARICES HAEMORRHAGE [None]
  - PORTAL HYPERTENSION [None]
  - PORTAL VEIN THROMBOSIS [None]
  - VOMITING [None]
